FAERS Safety Report 26172511 (Version 1)
Quarter: 2025Q4

REPORT INFORMATION
  Report Type: Spontaneous
  Country: EU (occurrence: EU)
  Receive Date: 20251218
  Receipt Date: 20251218
  Transmission Date: 20260117
  Serious: Yes (Other)
  Sender: ABBVIE
  Company Number: None

PATIENT
  Sex: Male

DRUGS (1)
  1. ENANTONE LP [Suspect]
     Active Substance: LEUPROLIDE ACETATE
     Indication: Prostate cancer
     Dosage: Q3MONTHS?DEPOT DUAL 11.25MG
     Route: 058

REACTIONS (6)
  - Hyperhidrosis [Unknown]
  - Weight increased [Unknown]
  - Degenerative bone disease [Unknown]
  - Muscle atrophy [Unknown]
  - Benign hepatic neoplasm [Unknown]
  - Intentional dose omission [Unknown]
